FAERS Safety Report 6779310-9 (Version None)
Quarter: 2010Q2

REPORT INFORMATION
  Report Type: 
  Country: None (occurrence: None)
  Receive Date: 20100618
  Receipt Date: 20100607
  Transmission Date: 20101027
  Serious: Yes (Disabling, Other)
  Sender: FDA-Public Use
  Company Number: PHHY2010DE38117

PATIENT
  Sex: Female

DRUGS (1)
  1. EXELON [Suspect]
     Indication: DEMENTIA ALZHEIMER'S TYPE
     Dosage: UNK
     Route: 062
     Dates: start: 20100531, end: 20100601

REACTIONS (3)
  - EPILEPSY [None]
  - FALL [None]
  - GAIT DISTURBANCE [None]
